FAERS Safety Report 5102252-1 (Version None)
Quarter: 2006Q3

REPORT INFORMATION
  Report Type: 
  Country: None (occurrence: None)
  Receive Date: 20060912
  Receipt Date: 20060906
  Transmission Date: 20061208
  Serious: Yes (Other)
  Sender: FDA-Public Use
  Company Number: US-JNJFOC-20060802968

PATIENT
  Age: 81 Year
  Sex: Female

DRUGS (12)
  1. ULTRAM SR [Suspect]
     Indication: BACK PAIN
  2. CARDIZEM [Concomitant]
  3. CYMBALTA [Concomitant]
  4. BUMEX [Concomitant]
  5. COUMADIN [Concomitant]
  6. ALDACTONE [Concomitant]
  7. ACTOS [Concomitant]
  8. PRILOSEC [Concomitant]
  9. NEURONTIN [Concomitant]
  10. XANAX [Concomitant]
  11. POTASSIUM [Concomitant]
  12. REGLAN [Concomitant]

REACTIONS (1)
  - CARDIAC FAILURE CONGESTIVE [None]
